FAERS Safety Report 6120295-6 (Version None)
Quarter: 2009Q1

REPORT INFORMATION
  Report Type: 
  Country: None (occurrence: None)
  Receive Date: 20090312
  Receipt Date: 20090225
  Transmission Date: 20090719
  Serious: Yes (Hospitalization)
  Sender: FDA-Public Use
  Company Number: 2009S1003481

PATIENT
  Age: 63 Year
  Sex: Female

DRUGS (9)
  1. AMITRIPTYLINE HYDROCHLORIDE [Suspect]
     Indication: DRUG USE FOR UNKNOWN INDICATION
     Dosage: 100 MG; TWICE A DAY; ORAL
     Route: 048
     Dates: start: 20040101, end: 20080819
  2. PRESOMEN /00073001/ (ESTROGENS CONJUGATED) [Suspect]
     Indication: HORMONE REPLACEMENT THERAPY
     Dosage: 0.3 MG; DAILY; ORAL
     Route: 048
     Dates: start: 20040101, end: 20080911
  3. VALPROATE SODIUM [Suspect]
     Indication: DRUG USE FOR UNKNOWN INDICATION
     Dosage: 500 MG; DAILY; ORAL
     Route: 048
     Dates: start: 20080820, end: 20080911
  4. ASPIRIN [Concomitant]
  5. BISOPROLOL FUMARATE [Concomitant]
  6. INFLUSPLIT SSW [Concomitant]
  7. JUNIK [Concomitant]
  8. LISINOPRIL [Concomitant]
  9. SIMVASTATIN [Concomitant]

REACTIONS (1)
  - LIVER INJURY [None]
